FAERS Safety Report 20462300 (Version 1)
Quarter: 2022Q1

REPORT INFORMATION
  Report Type: Report from Study
  Country: AU (occurrence: AU)
  Receive Date: 20220211
  Receipt Date: 20220211
  Transmission Date: 20220423
  Serious: Yes (Hospitalization)
  Sender: FDA-Public Use
  Company Number: AU-PFIZER INC-202200186757

PATIENT
  Age: 25 Year
  Sex: Male
  Weight: 73 kg

DRUGS (6)
  1. PALBOCICLIB [Suspect]
     Active Substance: PALBOCICLIB
     Indication: Lung neoplasm malignant
     Dosage: 100 MG, CYCLIC
     Route: 048
     Dates: start: 20220125, end: 20220128
  2. AVELUMAB [Suspect]
     Active Substance: AVELUMAB
     Indication: Lung neoplasm malignant
     Dosage: 685 MG, CYCLIC
     Route: 042
     Dates: start: 20220125, end: 20220127
  3. LEVETIRACETAM [Concomitant]
     Active Substance: LEVETIRACETAM
     Indication: Chronic disease
     Dosage: 1000 MG, ONCE A DAY
     Route: 048
     Dates: start: 20210413
  4. OXYCODONE [Concomitant]
     Active Substance: OXYCODONE
     Indication: Lung neoplasm malignant
     Dosage: 5 UG, PRN
     Route: 048
     Dates: start: 20210601
  5. ACETAMINOPHEN [Concomitant]
     Active Substance: ACETAMINOPHEN
     Indication: Lung neoplasm malignant
     Dosage: 500 MG, TWICE A DAY
     Route: 048
     Dates: start: 20210601
  6. METOCLOPRAMIDE [Concomitant]
     Active Substance: METOCLOPRAMIDE
     Dosage: 10 MG, TWICE A DAY
     Route: 048
     Dates: start: 20210601

REACTIONS (1)
  - Abdominal pain [Recovered/Resolved with Sequelae]

NARRATIVE: CASE EVENT DATE: 20220128
